FAERS Safety Report 21227496 (Version 2)
Quarter: 2022Q3

REPORT INFORMATION
  Report Type: Spontaneous
  Country: IT (occurrence: None)
  Receive Date: 20220818
  Receipt Date: 20220824
  Transmission Date: 20221027
  Serious: Yes (Hospitalization)
  Sender: FDA-Public Use
  Company Number: None

PATIENT
  Age: 42 Year
  Sex: Female

DRUGS (1)
  1. REBIF [Suspect]
     Active Substance: INTERFERON BETA-1A
     Indication: Relapsing multiple sclerosis
     Dosage: 44 MCG 3 VOLTE LA SETTIMANA
     Route: 058
     Dates: start: 20200114

REACTIONS (1)
  - Measles [Not Recovered/Not Resolved]

NARRATIVE: CASE EVENT DATE: 20220726
